FAERS Safety Report 23105848 (Version 1)
Quarter: 2023Q4

REPORT INFORMATION
  Report Type: Spontaneous
  Country: US (occurrence: US)
  Receive Date: 20231025
  Receipt Date: 20231025
  Transmission Date: 20240110
  Serious: No
  Sender: FDA-Public Use
  Company Number: US-MAYNE PHARMA-2023MYN000520

PATIENT
  Age: 40 Year
  Sex: Female

DRUGS (1)
  1. NEXTSTELLIS [Suspect]
     Active Substance: DROSPIRENONE\ESTETROL MONOHYDRATE
     Indication: Menstruation irregular
     Dosage: 3-14.2 MG, QD
     Route: 048
     Dates: start: 20230210, end: 20230814

REACTIONS (2)
  - Dysmenorrhoea [Unknown]
  - Heavy menstrual bleeding [Unknown]
